FAERS Safety Report 9078724 (Version 1)
Quarter: 2013Q1

REPORT INFORMATION
  Report Type: Report from Study
  Country: US (occurrence: US)
  Receive Date: 20130130
  Receipt Date: 20130130
  Transmission Date: 20140127
  Serious: No
  Sender: FDA-Public Use
  Company Number: US-ABBOTT-12P-163-0963414-00

PATIENT
  Age: 50 Year
  Sex: Male

DRUGS (5)
  1. HUMIRA 40 MG/0.8 ML PEN [Suspect]
     Indication: PSORIATIC ARTHROPATHY
  2. SENIOR SILVER MULTIVITAMIN [Concomitant]
     Indication: VITAMIN SUPPLEMENTATION
  3. OXYCONTIN [Concomitant]
     Indication: PAIN
     Dosage: 2-3 DAILY
     Route: 048
  4. XANAX [Concomitant]
     Indication: ANXIETY
     Dosage: 1-2 DAILY
     Route: 048
  5. REMERON [Concomitant]
     Indication: INSOMNIA

REACTIONS (1)
  - Injection site pain [Recovered/Resolved]
